FAERS Safety Report 18236946 (Version 2)
Quarter: 2020Q4

REPORT INFORMATION
  Report Type: Report from Study
  Country: US (occurrence: US)
  Receive Date: 20200907
  Receipt Date: 20201127
  Transmission Date: 20210113
  Serious: No
  Sender: FDA-Public Use
  Company Number: US-SA-2020SA241910

PATIENT

DRUGS (4)
  1. DUPILUMAB [Suspect]
     Active Substance: DUPILUMAB
     Indication: DERMATITIS ATOPIC
     Dosage: 300 MG, QOW
     Route: 058
     Dates: start: 202008
  2. DUPILUMAB [Suspect]
     Active Substance: DUPILUMAB
     Indication: ECZEMA
  3. FEXOFENADINE HCL [Concomitant]
     Active Substance: FEXOFENADINE HYDROCHLORIDE
     Dosage: UNK
     Route: 048
  4. LEXAPRO [Concomitant]
     Active Substance: ESCITALOPRAM OXALATE
     Dosage: UNK
     Route: 048

REACTIONS (6)
  - Eczema [Unknown]
  - Skin haemorrhage [Unknown]
  - Pruritus [Unknown]
  - Sleep disorder [Unknown]
  - Skin exfoliation [Unknown]
  - Dry skin [Unknown]

NARRATIVE: CASE EVENT DATE: 202008
